FAERS Safety Report 5611991-5 (Version None)
Quarter: 2008Q1

REPORT INFORMATION
  Report Type: 
  Country: None (occurrence: None)
  Receive Date: 20080204
  Receipt Date: 20080128
  Transmission Date: 20080703
  Serious: Yes (Hospitalization)
  Sender: FDA-Public Use
  Company Number: CZ-AVENTIS-200810979GDDC

PATIENT
  Age: 58 Year
  Sex: Male

DRUGS (6)
  1. ARAVA [Suspect]
     Route: 048
     Dates: start: 20070416, end: 20080125
  2. TRAMADOL HCL [Concomitant]
     Dosage: DOSE: UNK
  3. CALTRATE PLUS                      /01438001/ [Concomitant]
     Dosage: DOSE: UNK
  4. VIGANTOL [Concomitant]
     Dosage: DOSE: UNK
  5. METHOTREXATE [Concomitant]
     Dosage: DOSE: 7.5 - 20
  6. METHOTREXATE [Concomitant]
     Dates: start: 20070401

REACTIONS (4)
  - ALANINE AMINOTRANSFERASE INCREASED [None]
  - ASPARTATE AMINOTRANSFERASE INCREASED [None]
  - GAMMA-GLUTAMYLTRANSFERASE INCREASED [None]
  - HEPATIC ENZYME INCREASED [None]
